FAERS Safety Report 5568620-9 (Version None)
Quarter: 2007Q4

REPORT INFORMATION
  Report Type: 
  Country: None (occurrence: None)
  Receive Date: 20071220
  Receipt Date: 20071220
  Transmission Date: 20080405
  Serious: Yes (Hospitalization)
  Sender: FDA-Public Use
  Company Number: PHHO2006SE02297

PATIENT
  Age: 69 Year
  Sex: Female
  Weight: 58 kg

DRUGS (5)
  1. ZOLEDRONIC ACID [Suspect]
     Indication: OSTEOPOROTIC FRACTURE
     Dosage: DOUBLE-BLIND
     Route: 042
  2. ZOLEDRONIC ACID [Suspect]
     Dosage: 5MG, ONCE YEARLY
  3. CALCIUM CARBONATE [Concomitant]
  4. VITAMIN D [Concomitant]
  5. CITALOPRAM HYDROBROMIDE [Concomitant]
     Indication: DEPRESSION

REACTIONS (4)
  - ARTHRALGIA [None]
  - HIP ARTHROPLASTY [None]
  - HIP SURGERY [None]
  - OSTEONECROSIS [None]
